FAERS Safety Report 6524097-8 (Version None)
Quarter: 2009Q4

REPORT INFORMATION
  Report Type: 
  Country: None (occurrence: None)
  Receive Date: 20091230
  Receipt Date: 20091230
  Transmission Date: 20100525
  Serious: Yes (Other)
  Sender: FDA-Public Use
  Company Number: None

PATIENT
  Sex: Female
  Weight: 78.0187 kg

DRUGS (3)
  1. CITALOPRAM HYDROBROMIDE [Suspect]
     Indication: ANXIETY
     Dosage: 1 X DAILY ONCE DAILY
     Dates: start: 20091207
  2. CITALOPRAM HYDROBROMIDE [Suspect]
     Indication: DEPRESSION
     Dosage: 1 X DAILY ONCE DAILY
     Dates: start: 20091207
  3. CITALOPRAM HYDROBROMIDE [Suspect]

REACTIONS (10)
  - DYSPNOEA [None]
  - FORMICATION [None]
  - HYPERTENSION [None]
  - MYDRIASIS [None]
  - NAUSEA [None]
  - PALPITATIONS [None]
  - PANIC ATTACK [None]
  - SPEECH DISORDER [None]
  - VERTIGO [None]
  - VOMITING [None]
